FAERS Safety Report 7251449-3 (Version None)
Quarter: 2011Q1

REPORT INFORMATION
  Report Type: 
  Country: None (occurrence: None)
  Receive Date: 20110128
  Receipt Date: 20110118
  Transmission Date: 20110831
  Serious: Yes (Disabling, Other)
  Sender: FDA-Public Use
  Company Number: PHHY2010FR89481

PATIENT
  Age: 71 Year
  Sex: Female
  Weight: 30 kg

DRUGS (8)
  1. PRAVASTATIN [Concomitant]
     Dosage: 10 MG DAILY
  2. HALDOL [Concomitant]
     Dosage: 0.5 MG, DAILY
     Route: 048
  3. LEXOMIL [Concomitant]
     Dosage: 1.5 MG, DAILY
     Route: 048
  4. TAREG [Suspect]
     Dosage: 1 DF, QD (80 MG DAILY)
  5. LEVOTHYROX [Concomitant]
     Dosage: 12.5 MG, DAILY
  6. LAROZYL [Concomitant]
     Dosage: 25 MG, DAILY
  7. TAREG [Suspect]
     Indication: HYPERTENSION
     Dosage: 1 DF, QD (40 MG DAILY)
     Dates: start: 20080101
  8. TANGANIL [Concomitant]

REACTIONS (6)
  - RAYNAUD'S PHENOMENON [None]
  - WOUND [None]
  - CAPILLARY DISORDER [None]
  - SKIN NECROSIS [None]
  - SKIN DISCOLOURATION [None]
  - SKIN LESION [None]
